APPROVED DRUG PRODUCT: GLYCOPYRROLATE
Active Ingredient: GLYCOPYRROLATE
Strength: 0.2MG/ML
Dosage Form/Route: INJECTABLE;INJECTION
Application: A089335 | Product #001 | TE Code: AP
Applicant: AMERICAN REGENT INC
Approved: Jul 23, 1986 | RLD: No | RS: No | Type: RX